FAERS Safety Report 23662597 (Version 1)
Quarter: 2024Q1

REPORT INFORMATION
  Report Type: Spontaneous
  Country: US (occurrence: None)
  Receive Date: 20240321
  Receipt Date: 20240321
  Transmission Date: 20240409
  Serious: Yes (Other)
  Sender: FDA-Public Use
  Company Number: None

PATIENT
  Age: 66 Year
  Sex: Female
  Weight: 78.75 kg

DRUGS (19)
  1. RECLAST [Suspect]
     Active Substance: ZOLEDRONIC ACID
     Indication: Osteoporosis
     Dates: start: 20240307, end: 20240307
  2. DEVICE [Concomitant]
     Active Substance: DEVICE
  3. DEVICE [Concomitant]
     Active Substance: DEVICE
  4. DILTIAZEM [Concomitant]
     Active Substance: DILTIAZEM
  5. LEVOTHYROXINE [Concomitant]
     Active Substance: LEVOTHYROXINE\LEVOTHYROXINE SODIUM
  6. ZYRTEC [Concomitant]
     Active Substance: CETIRIZINE HYDROCHLORIDE
  7. FUROSEMIDE [Concomitant]
     Active Substance: FUROSEMIDE
  8. ATORVASTATIN [Concomitant]
     Active Substance: ATORVASTATIN
  9. FLONASE [Concomitant]
     Active Substance: FLUTICASONE PROPIONATE
  10. SPIRONOLACTONE [Concomitant]
     Active Substance: SPIRONOLACTONE
  11. EFFEXOR [Concomitant]
     Active Substance: VENLAFAXINE HYDROCHLORIDE
  12. METHOCARBAMOL [Concomitant]
     Active Substance: METHOCARBAMOL
  13. TRAMADOL [Concomitant]
     Active Substance: TRAMADOL\TRAMADOL HYDROCHLORIDE
  14. PREGABALIN [Concomitant]
     Active Substance: PREGABALIN
  15. XANAX [Concomitant]
     Active Substance: ALPRAZOLAM
  16. PANTOPRAZOLE [Concomitant]
     Active Substance: PANTOPRAZOLE
  17. VITAMIN B12 [Concomitant]
     Active Substance: CYANOCOBALAMIN
  18. VITAMIN D3 [Concomitant]
     Active Substance: CHOLECALCIFEROL
  19. CALCIUM [Concomitant]
     Active Substance: CALCIUM

REACTIONS (38)
  - Headache [None]
  - Influenza like illness [None]
  - Temporomandibular joint syndrome [None]
  - Arthralgia [None]
  - Chills [None]
  - Myalgia [None]
  - Chest pain [None]
  - Dyspnoea [None]
  - Costochondritis [None]
  - Dyskinesia [None]
  - Nausea [None]
  - Pain of skin [None]
  - Malaise [None]
  - Body temperature increased [None]
  - Taste disorder [None]
  - Hypophagia [None]
  - Movement disorder [None]
  - Musculoskeletal disorder [None]
  - Pallor [None]
  - Muscle spasms [None]
  - Back pain [None]
  - Diarrhoea [None]
  - Chest pain [None]
  - Arthralgia [None]
  - Tinnitus [None]
  - Fatigue [None]
  - Asthenia [None]
  - Neck pain [None]
  - Pain in extremity [None]
  - Pain in extremity [None]
  - Arthralgia [None]
  - Pain in extremity [None]
  - Pain [None]
  - Crying [None]
  - Musculoskeletal disorder [None]
  - Neck pain [None]
  - Rotator cuff repair [None]
  - Blood calcium decreased [None]

NARRATIVE: CASE EVENT DATE: 20240307
